FAERS Safety Report 4275144-8 (Version None)
Quarter: 2004Q1

REPORT INFORMATION
  Report Type: 
  Country: None (occurrence: None)
  Receive Date: 20040116
  Receipt Date: 20040102
  Transmission Date: 20041129
  Serious: Yes (Hospitalization)
  Sender: FDA-Public Use
  Company Number: M04-INT-003

PATIENT
  Age: 71 Year
  Sex: Male

DRUGS (2)
  1. INTEGRILIN [Suspect]
     Indication: ARTERIOGRAM CORONARY
     Dosage: INTRAVENOUS
     Route: 042
     Dates: start: 20031029, end: 20031029
  2. IODIXANOL [Suspect]
     Indication: ARTERIOGRAM CORONARY
     Dates: start: 20031029, end: 20031029

REACTIONS (2)
  - ANAPHYLACTIC REACTION [None]
  - CIRCULATORY COLLAPSE [None]
